FAERS Safety Report 9341812 (Version 3)
Quarter: 2014Q1

REPORT INFORMATION
  Report Type: Spontaneous
  Country: IT (occurrence: IT)
  Receive Date: 20130611
  Receipt Date: 20140120
  Transmission Date: 20141002
  Serious: Yes (Other)
  Sender: FDA-Public Use
  Company Number: IT-009507513-1306ITA001180

PATIENT
  Age: 21 Year
  Sex: Female

DRUGS (4)
  1. TRILAFON [Suspect]
     Dosage: TOTAL DAILY DOSE: 40 MG, FREQUENCY: TOTAL
     Route: 048
     Dates: start: 20130423, end: 20130423
  2. PAROXETINE HYDROCHLORIDE [Suspect]
     Dosage: TOTAL DAILY DOSE: 400 MG, FREQUENCY: TOTAL
     Route: 048
     Dates: start: 20130423, end: 20130423
  3. SURMONTIL (TRIMIPRAMINE MALEATE) [Suspect]
     Dosage: STRENGTH: 40 MG/ML, TOTAL DAILY DOSE: 40 MG/ ML, FREQUENCY: TOTAL, FORMULATION: DROPS
     Route: 048
     Dates: start: 20130423, end: 20130423
  4. XANAX [Suspect]
     Dosage: STRENGTH: 0.75 MG/ML, DOSE NOT PROVIDED, FREQUENCY: TOTAL, FORMULATION DROPS
     Route: 048
     Dates: start: 20130423, end: 20130423

REACTIONS (3)
  - Confusional state [Recovering/Resolving]
  - Drug abuse [Recovering/Resolving]
  - Toxicity to various agents [Recovering/Resolving]
